FAERS Safety Report 13822546 (Version 1)
Quarter: 2017Q3

REPORT INFORMATION
  Report Type: Spontaneous
  Country: DE (occurrence: DE)
  Receive Date: 20170801
  Receipt Date: 20170801
  Transmission Date: 20171127
  Serious: Yes (Hospitalization)
  Sender: FDA-Public Use
  Company Number: DE-ASTRAZENECA-2017SE77674

PATIENT
  Age: 21716 Day
  Sex: Female
  Weight: 80 kg

DRUGS (7)
  1. ATORVASTATIN [Suspect]
     Active Substance: ATORVASTATIN
     Indication: MYALGIA
     Dosage: LOWER DOSE
     Route: 048
  2. RAMIPRIL. [Concomitant]
     Active Substance: RAMIPRIL
     Route: 048
     Dates: start: 20161011
  3. BRILIQUE [Suspect]
     Active Substance: TICAGRELOR
     Route: 048
     Dates: start: 20161011
  4. ATORVASTATIN [Suspect]
     Active Substance: ATORVASTATIN
     Indication: MYALGIA
     Route: 048
     Dates: start: 20170405, end: 20170504
  5. ATORVASTATIN [Suspect]
     Active Substance: ATORVASTATIN
     Indication: MYALGIA
     Route: 048
     Dates: start: 201611, end: 20170404
  6. AMIODARONE [Suspect]
     Active Substance: AMIODARONE
     Route: 048
     Dates: start: 201611, end: 20170405
  7. XARELTO [Suspect]
     Active Substance: RIVAROXABAN
     Route: 048
     Dates: start: 20170113

REACTIONS (10)
  - Myalgia [Unknown]
  - Hypotonia [Unknown]
  - Haemorrhage [Unknown]
  - Anaemia [Unknown]
  - Fatigue [Unknown]
  - Feeling cold [Unknown]
  - Faeces discoloured [Unknown]
  - Hyperhidrosis [Recovered/Resolved]
  - Palpitations [Unknown]
  - Dyspnoea [Unknown]

NARRATIVE: CASE EVENT DATE: 20170505
